FAERS Safety Report 9781545 (Version 1)
Quarter: 2013Q4

REPORT INFORMATION
  Report Type: Spontaneous
  Country: US (occurrence: None)
  Receive Date: 20131223
  Receipt Date: 20131223
  Transmission Date: 20140711
  Serious: Yes (Other)
  Sender: FDA-Public Use
  Company Number: None

PATIENT
  Age: 81 Year
  Sex: Male
  Weight: 107.7 kg

DRUGS (1)
  1. CLOPIDOGREL [Suspect]
     Dates: start: 20131218

REACTIONS (2)
  - Arthralgia [None]
  - Myalgia [None]
